FAERS Safety Report 6205609-0 (Version None)
Quarter: 2009Q2

REPORT INFORMATION
  Report Type: 
  Country: None (occurrence: None)
  Receive Date: 20090527
  Receipt Date: 20090407
  Transmission Date: 20091009
  Serious: No
  Sender: FDA-Public Use
  Company Number: US-ABBOTT-09P-163-0567279-00

PATIENT
  Sex: Female
  Weight: 52.21 kg

DRUGS (13)
  1. SIMCOR [Suspect]
     Indication: BLOOD CHOLESTEROL INCREASED
     Dosage: 1000/40MG DAILY. ONE 500/20MG TABLET TWICE A DAY.
     Dates: start: 20090317, end: 20090320
  2. SYNTHROID [Concomitant]
     Indication: HYPOTHYROIDISM
  3. NAPROSYN [Concomitant]
     Indication: RHEUMATOID ARTHRITIS
  4. PROPRANOLOL HYDROCHLORIDE [Concomitant]
     Indication: HEART RATE IRREGULAR
     Dosage: THE PATIENT CUTS A 20MG TABLET IN HALF.
  5. CALCIUM [Concomitant]
     Indication: MINERAL SUPPLEMENTATION
  6. SIMVASTATIN [Concomitant]
     Indication: BLOOD CHOLESTEROL INCREASED
  7. IRON [Concomitant]
     Indication: MINERAL SUPPLEMENTATION
  8. FIBER [Concomitant]
     Indication: SUPPLEMENTATION THERAPY
  9. STOOL SOFTENER [Concomitant]
     Indication: SUPPLEMENTATION THERAPY
  10. STOOL SOFTENER [Concomitant]
     Indication: FAECES HARD
  11. SLEEPING PILLS [Concomitant]
     Indication: INSOMNIA
  12. INDERAL [Concomitant]
     Indication: HEART RATE IRREGULAR
  13. UNKNOWN PAIN MEDICATION [Concomitant]
     Indication: RHEUMATOID ARTHRITIS

REACTIONS (3)
  - DIARRHOEA [None]
  - HEART RATE INCREASED [None]
  - PRURITUS [None]
